FAERS Safety Report 22027364 (Version 1)
Quarter: 2023Q1

REPORT INFORMATION
  Report Type: Spontaneous
  Country: US (occurrence: None)
  Receive Date: 20230220
  Receipt Date: 20230220
  Transmission Date: 20230417
  Serious: Yes (Death, Hospitalization, Other)
  Sender: FDA-Public Use
  Company Number: None

PATIENT
  Age: 8 Year
  Sex: Male
  Weight: 59.4 kg

DRUGS (1)
  1. CAMPATH [Suspect]
     Active Substance: ALEMTUZUMAB
     Indication: Aplastic anaemia
     Dosage: FREQUENCY : DAILY;?
     Route: 042
     Dates: start: 20221231, end: 20230102

REACTIONS (9)
  - Inflammation [None]
  - Blood culture positive [None]
  - Bacterial infection [None]
  - Rash [None]
  - Blood pressure decreased [None]
  - Stenotrophomonas bacteraemia [None]
  - Heart rate increased [None]
  - Cerebral haemorrhage [None]
  - Brain herniation [None]

NARRATIVE: CASE EVENT DATE: 20230102
